FAERS Safety Report 4945894-6 (Version None)
Quarter: 2006Q1

REPORT INFORMATION
  Report Type: 
  Country: None (occurrence: None)
  Receive Date: 20060117
  Receipt Date: 20050112
  Transmission Date: 20060701
  Serious: Yes (Hospitalization)
  Sender: FDA-Public Use
  Company Number: A03200500185

PATIENT
  Age: 58 Year
  Sex: Male
  Weight: 83.4619 kg

DRUGS (7)
  1. PLAVIX [Suspect]
     Indication: ACUTE CORONARY SYNDROME
     Dosage: 75 MG QD - ORAL
     Route: 048
     Dates: start: 20040921, end: 20041119
  2. PLAVIX [Suspect]
     Indication: ACUTE MYOCARDIAL INFARCTION
     Dosage: 75 MG QD - ORAL
     Route: 048
     Dates: start: 20040921, end: 20041119
  3. PLAVIX [Suspect]
     Indication: STENT PLACEMENT
     Dosage: 75 MG QD - ORAL
     Route: 048
     Dates: start: 20040921, end: 20041119
  4. ACETYLSALICYLIC ACID SRT [Concomitant]
  5. METOPROLOL TARTRATE [Concomitant]
  6. ATORVASTATIN CALCIUM [Concomitant]
  7. SIMVASTATIN [Concomitant]

REACTIONS (4)
  - DYSPNOEA [None]
  - HYPERSENSITIVITY [None]
  - RED BLOOD CELL SEDIMENTATION RATE INCREASED [None]
  - RESPIRATORY DISORDER [None]
